FAERS Safety Report 24649168 (Version 1)
Quarter: 2024Q4

REPORT INFORMATION
  Report Type: Spontaneous
  Country: US (occurrence: US)
  Receive Date: 20241121
  Receipt Date: 20241121
  Transmission Date: 20250114
  Serious: No
  Sender: SANOFI AVENTIS
  Company Number: US-SANOFI-02304840

PATIENT
  Age: 55 Year
  Sex: Male

DRUGS (2)
  1. NEXVIAZYME [Suspect]
     Active Substance: AVALGLUCOSIDASE ALFA-NGPT
     Indication: Glycogen storage disease type II
     Dosage: UNK
     Route: 065
  2. NEXVIAZYME [Suspect]
     Active Substance: AVALGLUCOSIDASE ALFA-NGPT
     Dosage: QW
     Route: 065

REACTIONS (4)
  - Glycogen storage disease type II [Unknown]
  - Condition aggravated [Unknown]
  - Therapeutic response shortened [Unknown]
  - Off label use [Unknown]
